FAERS Safety Report 6698728-6 (Version None)
Quarter: 2010Q2

REPORT INFORMATION
  Report Type: 
  Country: None (occurrence: None)
  Receive Date: 20100427
  Receipt Date: 20100422
  Transmission Date: 20101027
  Serious: Yes (Other)
  Sender: FDA-Public Use
  Company Number: US-ELI_LILLY_AND_COMPANY-US201004006324

PATIENT
  Sex: Male

DRUGS (4)
  1. HUMALOG [Suspect]
     Indication: DIABETES MELLITUS
     Dosage: 7 U, 3/D
     Dates: start: 20100101
  2. HUMALOG [Suspect]
     Dosage: 7 U, 3/D
     Dates: start: 20100101
  3. HUMALOG [Suspect]
     Dosage: 4 U, 3/D
     Dates: start: 20100101
  4. LANTUS [Concomitant]

REACTIONS (2)
  - LEUKAEMIA [None]
  - LYMPHADENOPATHY [None]
